FAERS Safety Report 6226470-4 (Version None)
Quarter: 2009Q2

REPORT INFORMATION
  Report Type: 
  Country: None (occurrence: None)
  Receive Date: 20090612
  Receipt Date: 20090515
  Transmission Date: 20091009
  Serious: No
  Sender: FDA-Public Use
  Company Number: US-ABBOTT-09P-163-0573956-00

PATIENT
  Sex: Male
  Weight: 118.04 kg

DRUGS (2)
  1. HUMIRA [Suspect]
     Indication: PSORIASIS
     Dates: start: 20070101, end: 20080101
  2. HUMIRA [Suspect]
     Dates: start: 20080101, end: 20090401

REACTIONS (4)
  - ARTHRALGIA [None]
  - DRUG DOSE OMISSION [None]
  - JOINT RANGE OF MOTION DECREASED [None]
  - SKIN PLAQUE [None]
